FAERS Safety Report 8219188-X (Version None)
Quarter: 2012Q1

REPORT INFORMATION
  Report Type: 
  Country: None (occurrence: None)
  Receive Date: 20120319
  Receipt Date: 20120309
  Transmission Date: 20120608
  Serious: Yes (Hospitalization)
  Sender: FDA-Public Use
  Company Number: US-BAYER-2012-024974

PATIENT
  Age: 41 Year
  Sex: Female

DRUGS (6)
  1. YAZ [Suspect]
     Dosage: UNK
     Dates: start: 20080307, end: 20090201
  2. TOPAMAX [Concomitant]
     Dosage: 50 MG, UNK
  3. NORVASC [Concomitant]
     Dosage: 10 MG, UNK
  4. YASMIN [Suspect]
     Indication: UTERINE LEIOMYOMA
     Dosage: UNK
  5. LEXAPRO [Concomitant]
  6. MELOXICAM [Concomitant]
     Dosage: 15 MG, UNK

REACTIONS (1)
  - PULMONARY EMBOLISM [None]
